FAERS Safety Report 12742591 (Version 4)
Quarter: 2017Q2

REPORT INFORMATION
  Report Type: Spontaneous
  Country: US (occurrence: US)
  Receive Date: 20160914
  Receipt Date: 20170519
  Transmission Date: 20170830
  Serious: Yes (Hospitalization)
  Sender: FDA-Public Use
  Company Number: US-ACTELION-A-NJ2016-142141

PATIENT
  Age: 50 Year
  Sex: Female
  Weight: 72.56 kg

DRUGS (5)
  1. VELETRI [Suspect]
     Active Substance: EPOPROSTENOL
     Dosage: 12 NG/KG, PER MIN
     Route: 042
     Dates: start: 201609
  2. VELETRI [Suspect]
     Active Substance: EPOPROSTENOL
     Indication: PULMONARY ARTERIAL HYPERTENSION
     Dosage: 12 NG/KG, PER MIN
     Route: 042
     Dates: start: 20160802, end: 201609
  3. LETAIRIS [Concomitant]
     Active Substance: AMBRISENTAN
  4. ADCIRCA [Concomitant]
     Active Substance: TADALAFIL
  5. VELETRI [Suspect]
     Active Substance: EPOPROSTENOL
     Dosage: 40 NG/KG, UNK
     Route: 042

REACTIONS (10)
  - Rash pruritic [Unknown]
  - Diarrhoea [Unknown]
  - Chest pain [Unknown]
  - Urinary tract infection [Unknown]
  - Fluid retention [Unknown]
  - Feeling abnormal [Not Recovered/Not Resolved]
  - Chest discomfort [Unknown]
  - Cough [Unknown]
  - Urinary incontinence [Unknown]
  - Alopecia [Unknown]

NARRATIVE: CASE EVENT DATE: 20160902
